FAERS Safety Report 4935315-1 (Version None)
Quarter: 2006Q1

REPORT INFORMATION
  Report Type: 
  Country: None (occurrence: None)
  Receive Date: 20060307
  Receipt Date: 20030605
  Transmission Date: 20060701
  Serious: Yes (Hospitalization, Disabling)
  Sender: FDA-Public Use
  Company Number: US-MERCK-0306USA00850

PATIENT
  Age: 52 Year
  Sex: Female
  Weight: 130 kg

DRUGS (1)
  1. VIOXX [Suspect]
     Indication: ARTHRALGIA
     Route: 048
     Dates: start: 20010501, end: 20030501

REACTIONS (11)
  - ABDOMINAL DISCOMFORT [None]
  - ADVERSE EVENT [None]
  - ARRHYTHMIA [None]
  - CARDIAC DISORDER [None]
  - CHEST PAIN [None]
  - HEADACHE [None]
  - HEART RATE IRREGULAR [None]
  - HYPERTENSION [None]
  - INJURY [None]
  - SWELLING [None]
  - TRANSIENT ISCHAEMIC ATTACK [None]
